FAERS Safety Report 4636303-5 (Version None)
Quarter: 2005Q2

REPORT INFORMATION
  Report Type: 
  Country: None (occurrence: None)
  Receive Date: 20050415
  Receipt Date: 20040802
  Transmission Date: 20051028
  Serious: No
  Sender: FDA-Public Use
  Company Number: US-BRISTOL-MYERS SQUIBB COMPANY-12659512

PATIENT
  Age: 76 Year
  Sex: Female
  Weight: 57 kg

DRUGS (9)
  1. PARAPLATIN [Suspect]
     Indication: LUNG CARCINOMA CELL TYPE UNSPECIFIED STAGE I
     Route: 042
     Dates: start: 20040717, end: 20040717
  2. TAXOTERE [Concomitant]
     Route: 042
  3. DECADRON [Concomitant]
     Route: 042
     Dates: start: 20040714
  4. KYTRIL [Concomitant]
     Indication: PREMEDICATION
     Route: 042
     Dates: start: 20040714
  5. ZANTAC [Concomitant]
     Indication: PREMEDICATION
     Route: 042
     Dates: start: 20040714
  6. MULTI-VITAMIN [Concomitant]
  7. DARVOCET [Concomitant]
  8. COMBIVENT [Concomitant]
  9. CELEBREX [Concomitant]

REACTIONS (1)
  - HYPERSENSITIVITY [None]
